FAERS Safety Report 10445704 (Version 1)
Quarter: 2014Q3

REPORT INFORMATION
  Report Type: Report from Study
  Country: CA (occurrence: CA)
  Receive Date: 20140910
  Receipt Date: 20140910
  Transmission Date: 20150326
  Serious: Yes (Death)
  Sender: FDA-Public Use
  Company Number: CA-ABBVIE-14K-028-1281703-00

PATIENT
  Sex: Male

DRUGS (1)
  1. HUMIRA [Suspect]
     Active Substance: ADALIMUMAB
     Indication: CROHN^S DISEASE
     Route: 058
     Dates: start: 20131024

REACTIONS (3)
  - Renal failure [Fatal]
  - Meningitis [Fatal]
  - Clostridium difficile infection [Fatal]

NARRATIVE: CASE EVENT DATE: 2014
